FAERS Safety Report 17045373 (Version 5)
Quarter: 2019Q4

REPORT INFORMATION
  Report Type: Spontaneous
  Country: RU (occurrence: RU)
  Receive Date: 20191118
  Receipt Date: 20191219
  Transmission Date: 20200122
  Serious: Yes (Life-Threatening, Hospitalization, Other)
  Sender: FDA-Public Use
  Company Number: RU-B.I. PHARMACEUTICALS,INC./RIDGEFIELD-2019-BI-114526

PATIENT
  Age: 84 Year
  Sex: Male
  Weight: 80 kg

DRUGS (3)
  1. PRADAXA [Suspect]
     Active Substance: DABIGATRAN ETEXILATE MESYLATE
     Indication: ATRIAL FIBRILLATION
     Route: 048
     Dates: start: 2017, end: 20191114
  2. PRADAXA [Suspect]
     Active Substance: DABIGATRAN ETEXILATE MESYLATE
     Route: 048
     Dates: start: 20191205
  3. ACTILYSE [Suspect]
     Active Substance: ALTEPLASE
     Indication: ISCHAEMIC STROKE
     Dosage: DOSE : 0.9 MG/KG
     Route: 065
     Dates: start: 20191115, end: 20191115

REACTIONS (4)
  - Ischaemic stroke [Recovered/Resolved]
  - Epistaxis [Recovered/Resolved]
  - Off label use [Unknown]
  - Haemorrhagic transformation stroke [Recovered/Resolved]

NARRATIVE: CASE EVENT DATE: 20191115
